FAERS Safety Report 5063358-9 (Version None)
Quarter: 2006Q3

REPORT INFORMATION
  Report Type: 
  Country: None (occurrence: None)
  Receive Date: 20060724
  Receipt Date: 20060711
  Transmission Date: 20061208
  Serious: Yes (Other)
  Sender: FDA-Public Use
  Company Number: CHPA2006US06857

PATIENT
  Age: 29 Year
  Sex: Female
  Weight: 47.6 kg

DRUGS (2)
  1. NICOTINE [Suspect]
     Indication: SMOKING CESSATION THERAPY
     Dosage: 21 MG, QD, TRANSDERMAL
     Route: 062
     Dates: start: 20060710, end: 20060710
  2. PHENCYCLIDINE (PHENCYCLIDINE) [Suspect]
     Indication: DRUG ABUSER
     Dates: start: 20060710

REACTIONS (3)
  - DRUG ABUSER [None]
  - EXTRASYSTOLES [None]
  - HEART RATE IRREGULAR [None]
